FAERS Safety Report 11883487 (Version 13)
Quarter: 2020Q4

REPORT INFORMATION
  Report Type: Report from Study
  Country: CA (occurrence: CA)
  Receive Date: 20151231
  Receipt Date: 20201206
  Transmission Date: 20210113
  Serious: Yes (Hospitalization, Other)
  Sender: FDA-Public Use
  Company Number: PHHY2015CA061402

PATIENT
  Age: 69 Year
  Sex: Male

DRUGS (7)
  1. SANDOSTATIN LAR DEPOT [Suspect]
     Active Substance: OCTREOTIDE ACETATE
     Indication: CARCINOID TUMOUR
     Dosage: 30 MG, Q4W (EVERY 4 WEEKS)
     Route: 030
     Dates: start: 20150417
  2. SANDOSTATIN [Suspect]
     Active Substance: OCTREOTIDE ACETATE
  3. SANDOSTATIN LAR DEPOT [Suspect]
     Active Substance: OCTREOTIDE ACETATE
  4. PANCREASE MT [Concomitant]
     Active Substance: PANCRELIPASE
     Indication: PRODUCT USED FOR UNKNOWN INDICATION
     Dosage: UNK (2 TO 4 TABS TID BEFORE MEALS)
     Route: 048
     Dates: start: 20150616
  5. SANDOSTATIN LAR DEPOT [Suspect]
     Active Substance: OCTREOTIDE ACETATE
     Dosage: UNK
     Route: 030
     Dates: start: 20190219
  6. SANDOSTATIN [Suspect]
     Active Substance: OCTREOTIDE ACETATE
  7. SANDOSTATIN [Suspect]
     Active Substance: OCTREOTIDE ACETATE
     Indication: CARCINOID TUMOUR
     Dosage: 100 UG, TID
     Route: 058
     Dates: start: 2015, end: 2015

REACTIONS (25)
  - Thrombosis [Unknown]
  - Vitamin B12 decreased [Unknown]
  - Product use in unapproved indication [Unknown]
  - Second primary malignancy [Unknown]
  - Asthenia [Unknown]
  - Blood magnesium decreased [Unknown]
  - Musculoskeletal pain [Unknown]
  - Abscess [Unknown]
  - Hyperglycaemia [Unknown]
  - Injection site mass [Unknown]
  - Balance disorder [Unknown]
  - Blood pressure increased [Unknown]
  - Lung neoplasm malignant [Unknown]
  - Hepatocellular carcinoma [Unknown]
  - Incorrect route of product administration [Unknown]
  - Pancreatic carcinoma [Unknown]
  - Hunger [Unknown]
  - Hepatic cancer [Unknown]
  - Ascites [Unknown]
  - Biliary obstruction [Unknown]
  - Injection site swelling [Unknown]
  - Heart rate decreased [Unknown]
  - Blood pressure systolic increased [Unknown]
  - Body temperature decreased [Unknown]
  - Diarrhoea [Unknown]

NARRATIVE: CASE EVENT DATE: 20150515
